FAERS Safety Report 5122781-4 (Version None)
Quarter: 2006Q4

REPORT INFORMATION
  Report Type: 
  Country: None (occurrence: None)
  Receive Date: 20061004
  Receipt Date: 20060922
  Transmission Date: 20070319
  Serious: Yes (Death)
  Sender: FDA-Public Use
  Company Number: 230019

PATIENT
  Age: 77 Year
  Sex: Female

DRUGS (2)
  1. TENECTEPLASE (TENECTEPLASE) PWDR + SOLVENT, INJECTION SOLN, 50MG [Suspect]
     Indication: MYOCARDIAL INFARCTION
     Dosage: 35 MG, SINGLE, IV BOLUS
     Route: 040
     Dates: start: 20041228, end: 20041228
  2. HEPARIN [Suspect]
     Indication: MYOCARDIAL INFARCTION
     Dosage: 4000 UNIT, SINGLE, IV BOLUS
     Route: 040
     Dates: start: 20041228, end: 20041228

REACTIONS (3)
  - CEREBRAL INFARCTION [None]
  - COMA [None]
  - QUADRIPLEGIA [None]
